FAERS Safety Report 4302918-7 (Version None)
Quarter: 2004Q1

REPORT INFORMATION
  Report Type: 
  Country: None (occurrence: None)
  Receive Date: 20040223
  Receipt Date: 20040223
  Transmission Date: 20041129
  Serious: Yes (Life-Threatening)
  Sender: FDA-Public Use
  Company Number: None

PATIENT
  Sex: Male
  Weight: 94.3482 kg

DRUGS (1)
  1. NAPROXEN SODIUM 220 MG. QC QUALITY CHOICE [Suspect]
     Dosage: 1 EVERY ORAL
     Route: 048
     Dates: start: 20031128, end: 20040224

REACTIONS (4)
  - APHONIA [None]
  - MYOCARDIAL INFARCTION [None]
  - SWELLING FACE [None]
  - URTICARIA [None]
